FAERS Safety Report 5699511-0 (Version None)
Quarter: 2008Q2

REPORT INFORMATION
  Report Type: 
  Country: None (occurrence: None)
  Receive Date: 20080408
  Receipt Date: 20080408
  Transmission Date: 20081010
  Serious: No
  Sender: FDA-Public Use
  Company Number: None

PATIENT

DRUGS (3)
  1. OXYCODONE HYDROCHLORIDE [Suspect]
     Dosage: CAPSULE, IMMEDIATE RELEASE
  2. OXYCODONE AND ACETAMINOPHEN [Suspect]
     Dosage: TABLET
  3. OXYCODONE HYDROCHLORIDE [Suspect]
     Dosage: TABLET, CONTROLLED RELEASE

REACTIONS (3)
  - DRUG DISPENSING ERROR [None]
  - MEDICATION ERROR [None]
  - WRONG DRUG ADMINISTERED [None]
